FAERS Safety Report 20154249 (Version 1)
Quarter: 2021Q4

REPORT INFORMATION
  Report Type: Spontaneous
  Country: FR (occurrence: FR)
  Receive Date: 20211207
  Receipt Date: 20211207
  Transmission Date: 20220304
  Serious: Yes (Hospitalization)
  Sender: FDA-Public Use
  Company Number: FR-TEVA-2021-FR-1984383

PATIENT
  Age: 20 Year
  Sex: Female
  Weight: 63 kg

DRUGS (1)
  1. FLURBIPROFEN [Suspect]
     Active Substance: FLURBIPROFEN
     Indication: Dysmenorrhoea
     Dosage: 1 DOSAGE FORMS DAILY; ANTADYS 100 MG, COMPRIME PELLICULE
     Route: 048
     Dates: start: 20210627, end: 20210628

REACTIONS (1)
  - Acute kidney injury [Recovering/Resolving]

NARRATIVE: CASE EVENT DATE: 20210629
